FAERS Safety Report 23693768 (Version 1)
Quarter: 2024Q2

REPORT INFORMATION
  Report Type: Report from Study
  Country: RO (occurrence: RO)
  Receive Date: 20240401
  Receipt Date: 20240401
  Transmission Date: 20240716
  Serious: Yes (Death, Life-Threatening, Hospitalization, Other)
  Sender: FDA-Public Use
  Company Number: RO-ABBVIE-22K-135-4284318-00

PATIENT
  Age: 78 Year
  Sex: Male

DRUGS (2)
  1. HUMIRA [Suspect]
     Active Substance: ADALIMUMAB
     Indication: Psoriasis
     Route: 058
     Dates: start: 20151215, end: 20220121
  2. HUMIRA [Suspect]
     Active Substance: ADALIMUMAB
     Route: 058
     Dates: end: 202307

REACTIONS (12)
  - Respiratory failure [Fatal]
  - COVID-19 [Recovered/Resolved]
  - Therapeutic product effect decreased [Not Recovered/Not Resolved]
  - Cardiac failure chronic [Unknown]
  - Cardiac failure chronic [Not Recovered/Not Resolved]
  - Lung disorder [Unknown]
  - Chronic obstructive pulmonary disease [Unknown]
  - Myocardial ischaemia [Unknown]
  - Anaemia [Recovered/Resolved]
  - Rash [Unknown]
  - Atrial fibrillation [Unknown]
  - Laboratory test abnormal [Recovered/Resolved]

NARRATIVE: CASE EVENT DATE: 20220131
